FAERS Safety Report 14014416 (Version 2)
Quarter: 2017Q4

REPORT INFORMATION
  Report Type: Report from Study
  Country: FR (occurrence: FR)
  Receive Date: 20170927
  Receipt Date: 20171108
  Transmission Date: 20180321
  Serious: Yes (Death, Hospitalization, Other)
  Sender: FDA-Public Use
  Company Number: FR-GILEAD-2017-0294373

PATIENT
  Age: 76 Year
  Sex: Female
  Weight: 80 kg

DRUGS (5)
  1. SIMEPREVIR [Concomitant]
     Active Substance: SIMEPREVIR
     Indication: HEPATITIS C
     Dosage: 150 MG, QD
     Dates: start: 20150109, end: 20150409
  2. AVLOCARDYL                         /00030001/ [Concomitant]
     Active Substance: PROPRANOLOL HYDROCHLORIDE
     Indication: HYPERTENSION
     Dosage: 160 MG, QD
     Dates: start: 20150505, end: 20151118
  3. ALDACTONE [Concomitant]
     Active Substance: SPIRONOLACTONE
     Indication: PERITONITIS
     Dosage: 50 MG, QD
     Dates: start: 201410, end: 20151118
  4. SOFOSBUVIR [Suspect]
     Active Substance: SOFOSBUVIR
     Indication: HEPATITIS C
     Dosage: 400 MG, QD
     Route: 065
     Dates: start: 20150109, end: 20150409
  5. INNOHEP [Concomitant]
     Active Substance: TINZAPARIN SODIUM
     Indication: PORTAL VEIN THROMBOSIS
     Dosage: 0.6 MG, QD
     Dates: start: 20150505, end: 20151118

REACTIONS (3)
  - Gastrointestinal haemorrhage [Fatal]
  - Shock haemorrhagic [Fatal]
  - Varicose vein ruptured [Fatal]

NARRATIVE: CASE EVENT DATE: 201510
